FAERS Safety Report 5296367-5 (Version None)
Quarter: 2007Q2

REPORT INFORMATION
  Report Type: 
  Country: None (occurrence: None)
  Receive Date: 20070413
  Receipt Date: 20070402
  Transmission Date: 20071010
  Serious: Yes (Hospitalization)
  Sender: FDA-Public Use
  Company Number: FR-ROCHE-483941

PATIENT
  Age: 86 Year
  Sex: Female

DRUGS (10)
  1. ROCEPHIN [Suspect]
     Indication: LUNG INFECTION
     Dosage: THE PATIENT RECEIVED ONE DOSE DAILY. FORM REPORTED AS INJECTABLE SOLUTION.
     Route: 058
     Dates: start: 20070115
  2. CARDENSIEL [Concomitant]
  3. AMIODARONE HCL [Concomitant]
     Indication: ATRIAL FIBRILLATION
  4. ANTICOAGULANT [Concomitant]
     Indication: ATRIAL FIBRILLATION
  5. LASIX [Concomitant]
     Dosage: DRUG NAME REPORTED AS LASILLIX.  ONE DOSE DECREASED TO 1/2 DOSE.
  6. DIFFU-K [Concomitant]
     Dosage: THREE DOSES DECREASED TO TWO DOSES.
  7. SOLUPRED [Concomitant]
     Dosage: 10 MG DECREASED TO 7 MG.
  8. FURADANTIN [Concomitant]
     Dosage: DRUG NAME REPORTED AS FURATENDINE. ONE DOSE.
  9. COUMADIN [Concomitant]
     Dosage: 1/2 DOSE.
  10. COZAAR [Concomitant]
     Dosage: ONE DOSE DECREASED TO 1/2 DOSE.

REACTIONS (4)
  - INJECTION SITE HAEMATOMA [None]
  - INJECTION SITE RASH [None]
  - OEDEMA PERIPHERAL [None]
  - PAIN IN EXTREMITY [None]
